FAERS Safety Report 8590681-3 (Version None)
Quarter: 2012Q3

REPORT INFORMATION
  Report Type: 
  Country: None (occurrence: None)
  Receive Date: 20120813
  Receipt Date: 20120731
  Transmission Date: 20120928
  Serious: Yes (Hospitalization)
  Sender: FDA-Public Use
  Company Number: DE-JNJFOC-20120805680

PATIENT
  Sex: Female
  Weight: 85 kg

DRUGS (5)
  1. KEPPRA [Concomitant]
  2. BISOPROLOL [Concomitant]
  3. XARELTO [Suspect]
     Indication: ANTICOAGULANT THERAPY
     Route: 048
  4. RAMIPRIL [Concomitant]
  5. AMLODIPINE [Concomitant]

REACTIONS (1)
  - CEREBRAL ISCHAEMIA [None]
